FAERS Safety Report 7657279-2 (Version None)
Quarter: 2011Q3

REPORT INFORMATION
  Report Type: 
  Country: None (occurrence: None)
  Receive Date: 20110804
  Receipt Date: 20110726
  Transmission Date: 20111222
  Serious: Yes (Other)
  Sender: FDA-Public Use
  Company Number: PHHY2011US49396

PATIENT
  Sex: Male
  Weight: 100.68 kg

DRUGS (1)
  1. GILENYA [Suspect]
     Indication: MULTIPLE SCLEROSIS
     Dosage: 0.5 MG, QD
     Route: 048
     Dates: start: 20110128

REACTIONS (3)
  - NEPHROLITHIASIS [None]
  - COSTOVERTEBRAL ANGLE TENDERNESS [None]
  - BACK PAIN [None]
